FAERS Safety Report 14748457 (Version 1)
Quarter: 2018Q2

REPORT INFORMATION
  Report Type: Spontaneous
  Country: US (occurrence: US)
  Receive Date: 20180411
  Receipt Date: 20180411
  Transmission Date: 20180711
  Serious: No
  Sender: FDA-Public Use
  Company Number: US-AMGEN-USASP2017156454

PATIENT
  Age: 61 Year
  Sex: Female

DRUGS (1)
  1. PROLIA [Suspect]
     Active Substance: DENOSUMAB
     Indication: OSTEOPOROSIS
     Dosage: 60 MG, UNK
     Route: 065
     Dates: start: 20171002

REACTIONS (12)
  - Mouth ulceration [Not Recovered/Not Resolved]
  - Influenza like illness [Not Recovered/Not Resolved]
  - Pain in jaw [Not Recovered/Not Resolved]
  - Vision blurred [Recovered/Resolved]
  - Oral discomfort [Not Recovered/Not Resolved]
  - Ear pain [Not Recovered/Not Resolved]
  - Headache [Not Recovered/Not Resolved]
  - Syncope [Recovered/Resolved]
  - Dizziness [Recovered/Resolved]
  - Tooth disorder [Not Recovered/Not Resolved]
  - Gastrointestinal disorder [Unknown]
  - Gingival discolouration [Not Recovered/Not Resolved]

NARRATIVE: CASE EVENT DATE: 20171002
